FAERS Safety Report 10309252 (Version 2)
Quarter: 2014Q3

REPORT INFORMATION
  Report Type: Spontaneous
  Country: US (occurrence: None)
  Receive Date: 20140714
  Receipt Date: 20140804
  Transmission Date: 20150326
  Serious: Yes (Other)
  Sender: FDA-Public Use
  Company Number: 2014-US-008420

PATIENT
  Age: 55 Year
  Sex: Female

DRUGS (1)
  1. XYREM [Suspect]
     Active Substance: SODIUM OXYBATE
     Indication: SOMNOLENCE
     Route: 048
     Dates: start: 201302, end: 2013

REACTIONS (4)
  - Hypertension [None]
  - Off label use [None]
  - Oxygen saturation decreased [None]
  - Thyroidectomy [None]

NARRATIVE: CASE EVENT DATE: 201302
